FAERS Safety Report 4313323-1 (Version None)
Quarter: 2004Q1

REPORT INFORMATION
  Report Type: 
  Country: None (occurrence: None)
  Receive Date: 20040304
  Receipt Date: 20040224
  Transmission Date: 20041129
  Serious: Yes (Hospitalization, Other)
  Sender: FDA-Public Use
  Company Number: 2004012894

PATIENT
  Sex: Male
  Weight: 48.5349 kg

DRUGS (1)
  1. DILANTIN [Suspect]
     Indication: ILL-DEFINED DISORDER
     Dates: end: 20040223

REACTIONS (3)
  - DEHYDRATION [None]
  - DRUG LEVEL INCREASED [None]
  - MARKEDLY REDUCED DIETARY INTAKE [None]
